FAERS Safety Report 9931291 (Version 1)
Quarter: 2014Q1

REPORT INFORMATION
  Report Type: Spontaneous
  Country: US (occurrence: US)
  Receive Date: 20140228
  Receipt Date: 20140228
  Transmission Date: 20141002
  Serious: Yes (Other)
  Sender: FDA-Public Use
  Company Number: US-AMGEN-USASP2014013343

PATIENT
  Sex: Female

DRUGS (2)
  1. PROLIA [Suspect]
     Indication: OSTEOPOROSIS POSTMENOPAUSAL
     Route: 065
  2. EVISTA [Concomitant]
     Indication: OSTEOPOROSIS POSTMENOPAUSAL

REACTIONS (2)
  - Compression fracture [Unknown]
  - Nuclear magnetic resonance imaging abnormal [Unknown]
